FAERS Safety Report 8213035-8 (Version None)
Quarter: 2012Q1

REPORT INFORMATION
  Report Type: 
  Country: None (occurrence: None)
  Receive Date: 20120315
  Receipt Date: 20120307
  Transmission Date: 20120608
  Serious: Yes (Hospitalization)
  Sender: FDA-Public Use
  Company Number: DE-JNJFOC-20100809030

PATIENT
  Sex: Male

DRUGS (14)
  1. ASPIRIN [Concomitant]
     Indication: PROPHYLAXIS
     Route: 048
     Dates: start: 19981101
  2. TIMO-COMOD [Concomitant]
     Indication: PROPHYLAXIS
     Route: 061
     Dates: start: 19870601
  3. BIOFAX CLASSIC [Concomitant]
     Indication: HYPERTENSION
     Route: 048
     Dates: start: 20100603, end: 20100825
  4. ABIRATERONE ACETATE [Suspect]
     Route: 048
  5. METAMIZOL [Concomitant]
     Indication: FLANK PAIN
     Route: 048
     Dates: start: 20100310
  6. FLUVASTATIN SODIUM [Concomitant]
     Indication: PROPHYLAXIS
     Route: 048
     Dates: start: 19981101
  7. TORSEMIDE [Concomitant]
     Indication: OEDEMA PERIPHERAL
     Route: 048
     Dates: start: 20100811, end: 20100814
  8. ABIRATERONE ACETATE [Suspect]
     Indication: PROSTATE CANCER METASTATIC
     Route: 048
     Dates: start: 20100224
  9. METOPROLOL SUCCINATE [Concomitant]
     Indication: HYPERTENSION
     Route: 048
     Dates: start: 19981101, end: 20100827
  10. MICARDIS [Concomitant]
     Indication: HYPERTENSION
     Route: 048
     Dates: start: 20100811, end: 20100826
  11. ZOMETA [Concomitant]
     Indication: METASTASES TO BONE
     Route: 042
     Dates: start: 20100210
  12. PREDNISOLONE [Suspect]
     Indication: PROSTATE CANCER METASTATIC
     Route: 048
     Dates: start: 20100224
  13. OMEPRAZOLE [Concomitant]
     Indication: PROPHYLAXIS AGAINST GASTROINTESTINAL ULCER
     Route: 048
     Dates: start: 19981101, end: 20100824
  14. METAMIZOL [Concomitant]
     Indication: PAIN IN EXTREMITY
     Route: 048
     Dates: start: 20100310

REACTIONS (1)
  - ISCHAEMIC CARDIOMYOPATHY [None]
